FAERS Safety Report 4679488-7 (Version None)
Quarter: 2005Q2

REPORT INFORMATION
  Report Type: 
  Country: None (occurrence: None)
  Receive Date: 20050531
  Receipt Date: 20050525
  Transmission Date: 20051028
  Serious: Yes (Life-Threatening, Hospitalization)
  Sender: FDA-Public Use
  Company Number: A0560200A

PATIENT
  Age: 71 Year
  Sex: Male

DRUGS (5)
  1. NAVELBINE [Suspect]
     Dosage: INTRAVENOUS
     Route: 042
  2. CISPLATIN [Suspect]
     Dosage: INTRAVENOUS
     Route: 042
     Dates: start: 20050221, end: 20050221
  3. CETUXIMAB INJECTION (CETUXIMAB) [Suspect]
     Dosage: INTRAVENOUS
     Route: 042
     Dates: start: 20050221, end: 20050221
  4. HYDROCORTISONE [Concomitant]
  5. THYROXINE SODIUM [Concomitant]

REACTIONS (2)
  - CONDITION AGGRAVATED [None]
  - DIARRHOEA [None]
